FAERS Safety Report 18640003 (Version 1)
Quarter: 2020Q4

REPORT INFORMATION
  Report Type: Spontaneous
  Country: US (occurrence: US)
  Receive Date: 20201220
  Receipt Date: 20201220
  Transmission Date: 20210114
  Serious: No
  Sender: FDA-Public Use
  Company Number: US-PACIRA-202000303

PATIENT
  Age: 58 Year
  Sex: Male

DRUGS (1)
  1. EXPAREL [Suspect]
     Active Substance: BUPIVACAINE
     Indication: NERVE BLOCK
     Dosage: DOSE UNKNOWN, ON-TIME ADMINISTRATION
     Route: 065
     Dates: start: 20200722, end: 20200722

REACTIONS (2)
  - Hypoaesthesia [Not Recovered/Not Resolved]
  - Post procedural swelling [Unknown]
